FAERS Safety Report 25110506 (Version 1)
Quarter: 2025Q1

REPORT INFORMATION
  Report Type: Spontaneous
  Country: US (occurrence: US)
  Receive Date: 20250324
  Receipt Date: 20250324
  Transmission Date: 20250409
  Serious: No
  Sender: ROCHE
  Company Number: US-ROCHE-10000230547

PATIENT
  Age: 76 Year
  Sex: Female

DRUGS (1)
  1. ACTEMRA [Suspect]
     Active Substance: TOCILIZUMAB
     Indication: Iritis
     Dosage: TUMMY
     Route: 058
     Dates: start: 20250213

REACTIONS (6)
  - Accidental exposure to product [Unknown]
  - Off label use [Unknown]
  - No adverse event [Unknown]
  - Incorrect dose administered [Unknown]
  - Device defective [Unknown]
  - Wrong technique in product usage process [Unknown]

NARRATIVE: CASE EVENT DATE: 20250213
